FAERS Safety Report 15641662 (Version 1)
Quarter: 2018Q4

REPORT INFORMATION
  Report Type: Report from Study
  Country: None (occurrence: US)
  Receive Date: 20181121
  Receipt Date: 20181121
  Transmission Date: 20190205
  Serious: Yes (Hospitalization, Other)
  Sender: FDA-Public Use
  Company Number: US-ABBVIE-18S-163-2559287-00

PATIENT
  Age: 54 Year
  Sex: Male

DRUGS (1)
  1. LUPRON [Suspect]
     Active Substance: LEUPROLIDE ACETATE
     Indication: PRODUCT USED FOR UNKNOWN INDICATION
     Route: 050

REACTIONS (7)
  - Prostate cancer [Unknown]
  - Pain [Unknown]
  - Dysuria [Unknown]
  - Prostate cancer metastatic [Unknown]
  - Pelvic pain [Unknown]
  - Biopsy prostate abnormal [Unknown]
  - Back pain [Unknown]

NARRATIVE: CASE EVENT DATE: 20181008
